FAERS Safety Report 21619270 (Version 1)
Quarter: 2022Q4

REPORT INFORMATION
  Report Type: Spontaneous
  Country: AU (occurrence: AU)
  Receive Date: 20221120
  Receipt Date: 20221120
  Transmission Date: 20230113
  Serious: Yes (Hospitalization, Other)
  Sender: FDA-Public Use
  Company Number: AU-JNJFOC-20221140068

PATIENT
  Age: 67 Year
  Sex: Male

DRUGS (1)
  1. TRABECTEDIN [Suspect]
     Active Substance: TRABECTEDIN
     Indication: Myxoid liposarcoma
     Route: 065
     Dates: start: 2022

REACTIONS (5)
  - Rhabdomyolysis [Unknown]
  - Acute kidney injury [Recovered/Resolved]
  - Pancytopenia [Unknown]
  - Mixed liver injury [Unknown]
  - Cholecystitis acute [Unknown]

NARRATIVE: CASE EVENT DATE: 20220101
